FAERS Safety Report 6241355-5 (Version None)
Quarter: 2009Q2

REPORT INFORMATION
  Report Type: 
  Country: None (occurrence: None)
  Receive Date: 20090619
  Receipt Date: 20090619
  Transmission Date: 20091009
  Serious: Yes (Life-Threatening)
  Sender: FDA-Public Use
  Company Number: None

PATIENT
  Age: 76 Year
  Sex: Male
  Weight: 104.3273 kg

DRUGS (1)
  1. DIGOXIN [Suspect]
     Indication: CARDIAC FIBRILLATION
     Dosage: 0.125 MG DAILY PO
     Route: 048
     Dates: start: 19890101, end: 20090226

REACTIONS (4)
  - ASTHENIA [None]
  - DIARRHOEA [None]
  - HEART RATE DECREASED [None]
  - INFLUENZA [None]
